FAERS Safety Report 25368900 (Version 2)
Quarter: 2025Q2

REPORT INFORMATION
  Report Type: Report from Study
  Country: US (occurrence: US)
  Receive Date: 20250528
  Receipt Date: 20250610
  Transmission Date: 20250716
  Serious: Yes (Other)
  Sender: ABBVIE
  Company Number: US-ABBVIE-6298801

PATIENT
  Age: 64 Year
  Sex: Female
  Weight: 63.502 kg

DRUGS (1)
  1. RINVOQ [Suspect]
     Active Substance: UPADACITINIB
     Indication: Rheumatoid arthritis
     Dosage: FORM STRENTH 15 MG
     Route: 048
     Dates: start: 20230102

REACTIONS (4)
  - Escherichia infection [Recovered/Resolved]
  - Gait disturbance [Recovering/Resolving]
  - Discomfort [Recovered/Resolved]
  - Post procedural complication [Unknown]

NARRATIVE: CASE EVENT DATE: 20240101
